FAERS Safety Report 9156614 (Version 6)
Quarter: 2013Q3

REPORT INFORMATION
  Report Type: Spontaneous
  Country: US (occurrence: US)
  Receive Date: 20130312
  Receipt Date: 20130715
  Transmission Date: 20140515
  Serious: Yes (Hospitalization, Other)
  Sender: FDA-Public Use
  Company Number: US-GENZYME-FABR-1003093

PATIENT
  Age: 50 Year
  Sex: Male
  Weight: 71.2 kg

DRUGS (5)
  1. FABRAZYME [Suspect]
     Indication: FABRY^S DISEASE
     Dosage: 1.1 MG/KG, Q2W
     Route: 042
     Dates: start: 20030710
  2. COUMADIN [Concomitant]
     Indication: CEREBROVASCULAR ACCIDENT
     Dosage: 5 MG, UNK
     Route: 065
     Dates: start: 201112
  3. ACETAMINOPHEN [Concomitant]
     Indication: PAIN
     Dosage: 325-650 MG, PRN
     Route: 048
  4. ACETAMINOPHEN [Concomitant]
     Indication: PYREXIA
  5. WARFARIN [Concomitant]
     Indication: COAGULOPATHY
     Dosage: 5 MG, QD
     Route: 048

REACTIONS (3)
  - Chest pain [Recovered/Resolved]
  - Convulsion [Recovered/Resolved]
  - Proteinuria [Not Recovered/Not Resolved]
